FAERS Safety Report 25140539 (Version 1)
Quarter: 2025Q1

REPORT INFORMATION
  Report Type: Spontaneous
  Country: CN (occurrence: CN)
  Receive Date: 20250331
  Receipt Date: 20250331
  Transmission Date: 20250409
  Serious: Yes (Death, Life-Threatening, Hospitalization, Other)
  Sender: ALEXION PHARMACEUTICALS
  Company Number: CN-ASTRAZENECA-202503CHN024906CN

PATIENT
  Age: 74 Year
  Weight: 51 kg

DRUGS (1)
  1. TAGRISSO [Suspect]
     Active Substance: OSIMERTINIB
     Indication: Tumour treating fields therapy
     Dosage: 80 MILLIGRAM, QD

REACTIONS (7)
  - Interstitial lung disease [Fatal]
  - Dyspnoea [Fatal]
  - Pyrexia [Fatal]
  - Interstitial lung disease [Fatal]
  - Acute respiratory distress syndrome [Fatal]
  - Pneumonitis [Fatal]
  - Condition aggravated [Fatal]
